FAERS Safety Report 6506520-8 (Version None)
Quarter: 2009Q4

REPORT INFORMATION
  Report Type: 
  Country: None (occurrence: None)
  Receive Date: 20091221
  Receipt Date: 20091210
  Transmission Date: 20100525
  Serious: No
  Sender: FDA-Public Use
  Company Number: AT-ASTRAZENECA-2009SE31561

PATIENT
  Age: 12000 Day
  Sex: Female
  Weight: 50 kg

DRUGS (2)
  1. SEROQUEL XR [Suspect]
     Indication: SCHIZOPHRENIA
     Route: 048
  2. CAL-D-VITA [Concomitant]

REACTIONS (1)
  - LEUKOPENIA [None]
